FAERS Safety Report 5448310-3 (Version None)
Quarter: 2007Q3

REPORT INFORMATION
  Report Type: 
  Country: None (occurrence: None)
  Receive Date: 20070911
  Receipt Date: 20070905
  Transmission Date: 20080115
  Serious: Yes (Hospitalization, Other)
  Sender: FDA-Public Use
  Company Number: HQWYE016205SEP07

PATIENT
  Sex: Female

DRUGS (8)
  1. CORDARONE [Suspect]
     Indication: HYPERTENSION
     Dosage: DOSE AND FREQUENCY NOT SPECIFIED
     Route: 048
     Dates: end: 20070221
  2. FLECAINIDE ACETATE [Suspect]
     Indication: EXTRASYSTOLES
     Dosage: DOSE AND FREQUENCY NOT SPECIFIED
     Route: 065
     Dates: start: 20070221, end: 20070328
  3. GINKOR [Concomitant]
     Dosage: DOSE AND FREQUENCY NOT SPECIFIED
     Route: 048
  4. IRBESARTAN [Concomitant]
     Dosage: DOSE AND FREQUENCY NOT SPECIFIED
     Route: 048
  5. LIPANTHYL ^FOURNIER^ [Concomitant]
     Dosage: DOSE AND FREQUENCY NOT SPECIFIED
     Route: 048
     Dates: end: 20070328
  6. CERVOXAN [Concomitant]
     Dosage: DOSE AND FREQUENCY NOT SPECIFIED
     Route: 048
  7. PLAQUENIL [Suspect]
     Indication: CUTANEOUS LUPUS ERYTHEMATOSUS
     Dosage: 200 MG TABLET, DOSE AND FREQUENCY NOT SPECIFIED
     Route: 048
     Dates: start: 20070227, end: 20070303
  8. OLMETEC [Suspect]
     Indication: HYPERTENSION
     Dosage: DOSE AND FREQUENCY NOT SPECIFIED
     Route: 065

REACTIONS (3)
  - DERMATITIS EXFOLIATIVE [None]
  - ERYSIPELAS [None]
  - LUPUS-LIKE SYNDROME [None]
